FAERS Safety Report 16336845 (Version 2)
Quarter: 2019Q3

REPORT INFORMATION
  Report Type: Report from Study
  Country: DE (occurrence: DE)
  Receive Date: 20190521
  Receipt Date: 20190911
  Transmission Date: 20191004
  Serious: Yes (Hospitalization)
  Sender: FDA-Public Use
  Company Number: DE-SA-2019SA137436

PATIENT
  Age: 77 Year
  Sex: Female
  Weight: 64.5 kg

DRUGS (12)
  1. BLINDED NO STUDY DRUG GIVEN [Suspect]
     Active Substance: INVESTIGATIONAL PRODUCT
     Indication: RECTAL CANCER
     Dosage: 280 MG, QCY
     Route: 042
     Dates: start: 20190212, end: 20190212
  2. BLINDED NO STUDY DRUG GIVEN [Suspect]
     Active Substance: INVESTIGATIONAL PRODUCT
     Dosage: 280 MG, QCY
     Route: 042
     Dates: start: 20190129, end: 20190129
  3. FOLINIC ACID [Suspect]
     Active Substance: LEUCOVORIN
     Indication: RECTAL CANCER
     Dosage: 557 MG, QCY
     Route: 042
     Dates: start: 20190429, end: 20190429
  4. OXALIPLATIN. [Suspect]
     Active Substance: OXALIPLATIN
     Indication: RECTAL CANCER
     Dosage: 154 MG, QCY
     Route: 042
     Dates: start: 20190429, end: 20190429
  5. BLINDED PLACEBO [Suspect]
     Active Substance: INVESTIGATIONAL PRODUCT
     Indication: RECTAL CANCER
     Dosage: 280 MG, QCY
     Route: 042
     Dates: start: 20190212, end: 20190212
  6. BLINDED AFLIBERCEPT [Suspect]
     Active Substance: AFLIBERCEPT
     Dosage: 280 MG, QCY
     Route: 042
     Dates: start: 20190129, end: 20190129
  7. FLUOROURACIL. [Suspect]
     Active Substance: FLUOROURACIL
     Indication: RECTAL CANCER
     Dosage: 2896 MG, QCY
     Route: 042
     Dates: start: 20190429, end: 20190429
  8. FOLINIC ACID [Suspect]
     Active Substance: LEUCOVORIN
     Dosage: 557 MG, QCY
     Route: 042
     Dates: start: 20190129, end: 20190129
  9. OXALIPLATIN. [Suspect]
     Active Substance: OXALIPLATIN
     Dosage: 154 MG, QCY
     Route: 042
     Dates: start: 20190129, end: 20190129
  10. BLINDED PLACEBO [Suspect]
     Active Substance: INVESTIGATIONAL PRODUCT
     Dosage: 280 MG, QCY
     Route: 042
     Dates: start: 20190129, end: 20190129
  11. BLINDED AFLIBERCEPT [Suspect]
     Active Substance: AFLIBERCEPT
     Indication: RECTAL CANCER
     Dosage: 280 MG, QCY
     Route: 042
     Dates: start: 20190212, end: 20190212
  12. FLUOROURACIL. [Suspect]
     Active Substance: FLUOROURACIL
     Dosage: 2896 MG, QCY
     Route: 042
     Dates: start: 20190129, end: 20190129

REACTIONS (1)
  - Acute coronary syndrome [Recovered/Resolved]

NARRATIVE: CASE EVENT DATE: 20190517
